FAERS Safety Report 4537662-4 (Version None)
Quarter: 2004Q4

REPORT INFORMATION
  Report Type: 
  Country: None (occurrence: None)
  Receive Date: 20041216
  Receipt Date: 20040509
  Transmission Date: 20050328
  Serious: Yes (Other)
  Sender: FDA-Public Use
  Company Number: HQWYE805511MAY04

PATIENT

DRUGS (1)
  1. EFFEXOR XR [Suspect]
     Dosage: 150 MG (FREQUENCY UNKNOWN), ORAL
     Route: 048

REACTIONS (1)
  - PANCYTOPENIA [None]
